FAERS Safety Report 13838854 (Version 1)
Quarter: 2017Q3

REPORT INFORMATION
  Report Type: Spontaneous
  Country: US (occurrence: US)
  Receive Date: 20170807
  Receipt Date: 20170807
  Transmission Date: 20171127
  Serious: No
  Sender: FDA-Public Use
  Company Number: US-PFIZER INC-2017336383

PATIENT
  Sex: Female

DRUGS (1)
  1. METHOTREXATE SODIUM. [Suspect]
     Active Substance: METHOTREXATE SODIUM
     Dosage: 15 MG, WEEKLY

REACTIONS (14)
  - Musculoskeletal stiffness [Unknown]
  - Blood uric acid increased [Unknown]
  - Overweight [Unknown]
  - Joint swelling [Unknown]
  - Myalgia [Unknown]
  - Blood pressure increased [Unknown]
  - Joint range of motion decreased [Unknown]
  - Arthralgia [Unknown]
  - Vitamin D decreased [Unknown]
  - Tinnitus [Unknown]
  - Peripheral swelling [Unknown]
  - Cough [Unknown]
  - Pain in extremity [Unknown]
  - Anti-cyclic citrullinated peptide antibody positive [Unknown]
